FAERS Safety Report 7914345-1 (Version None)
Quarter: 2011Q4

REPORT INFORMATION
  Report Type: 
  Country: None (occurrence: None)
  Receive Date: 20111115
  Receipt Date: 20111107
  Transmission Date: 20120403
  Serious: Yes (Other)
  Sender: FDA-Public Use
  Company Number: ES-JNJFOC-20111011535

PATIENT
  Sex: Female
  Weight: 62 kg

DRUGS (2)
  1. IBUPROFEN [Concomitant]
     Indication: ILL-DEFINED DISORDER
     Route: 065
  2. ORTHO EVRA [Suspect]
     Indication: CONTRACEPTION
     Route: 062
     Dates: start: 20111011, end: 20111029

REACTIONS (3)
  - POLYMENORRHOEA [None]
  - ADNEXA UTERI PAIN [None]
  - TREATMENT NONCOMPLIANCE [None]
